FAERS Safety Report 20111223 (Version 1)
Quarter: 2021Q4

REPORT INFORMATION
  Report Type: Spontaneous
  Country: FR (occurrence: FR)
  Receive Date: 20211125
  Receipt Date: 20211125
  Transmission Date: 20220304
  Serious: Yes (Hospitalization)
  Sender: FDA-Public Use
  Company Number: None

PATIENT
  Age: 45 Year
  Sex: Female
  Weight: 90 kg

DRUGS (1)
  1. ADALIMUMAB [Suspect]
     Active Substance: ADALIMUMAB
     Indication: Rheumatoid arthritis
     Dosage: 40 MILLIGRAM, Q2WK
     Route: 065
     Dates: start: 202010, end: 20211012

REACTIONS (7)
  - Arthralgia [Recovering/Resolving]
  - Purpura [Recovering/Resolving]
  - Rash vesicular [Recovering/Resolving]
  - Uveitis [Recovered/Resolved]
  - Pleural effusion [Not Recovered/Not Resolved]
  - Rash pustular [Recovering/Resolving]
  - Proteinuria [Not Recovered/Not Resolved]

NARRATIVE: CASE EVENT DATE: 20210801
